FAERS Safety Report 16028914 (Version 1)
Quarter: 2019Q2

REPORT INFORMATION
  Report Type: Spontaneous
  Country: US (occurrence: US)
  Receive Date: 20190301
  Receipt Date: 20190301
  Transmission Date: 20190711
  Serious: Yes (Hospitalization)
  Sender: FDA-Public Use
  Company Number: None

PATIENT
  Age: 38 Year
  Sex: Male
  Weight: 112 kg

DRUGS (2)
  1. DIVALPROEX SODIUM. [Concomitant]
     Active Substance: DIVALPROEX SODIUM
  2. CLOZAPINE. [Suspect]
     Active Substance: CLOZAPINE
     Indication: SCHIZOPHRENIA
     Dates: start: 20190109, end: 20190123

REACTIONS (3)
  - Electrocardiogram ST segment abnormal [None]
  - Influenza like illness [None]
  - Pancreatitis acute [None]

NARRATIVE: CASE EVENT DATE: 20190122
